FAERS Safety Report 11807415 (Version 1)
Quarter: 2015Q4

REPORT INFORMATION
  Report Type: Spontaneous
  Country: US (occurrence: US)
  Receive Date: 20151207
  Receipt Date: 20151207
  Transmission Date: 20160305
  Serious: No
  Sender: FDA-Public Use
  Company Number: US-BAUSCH-BL-2014-010958

PATIENT
  Age: 65 Year
  Sex: Female
  Weight: 69.01 kg

DRUGS (1)
  1. TOBRAMYCIN AND DEXAMETHASONE [Suspect]
     Active Substance: DEXAMETHASONE\TOBRAMYCIN
     Indication: EYE INFECTION
     Dosage: 1 DROP IN EACH EYE EVERY 6 HOURS
     Route: 047
     Dates: start: 20141204

REACTIONS (1)
  - Intraocular pressure test abnormal [Recovered/Resolved]

NARRATIVE: CASE EVENT DATE: 20141204
